FAERS Safety Report 18798537 (Version 1)
Quarter: 2021Q1

REPORT INFORMATION
  Report Type: Other
  Country: US (occurrence: US)
  Receive Date: 20210128
  Receipt Date: 20210128
  Transmission Date: 20210419
  Serious: Yes (Other)
  Sender: FDA-Public Use
  Company Number: US-ROCHE-2753740

PATIENT
  Sex: Female
  Weight: 45.4 kg

DRUGS (19)
  1. XELODA [Suspect]
     Active Substance: CAPECITABINE
     Indication: METASTASES TO LUNG
     Dosage: BID FOR 14 DAYS ON 7 DAYS OFF REPEAT
     Route: 048
  2. FERROUS SULFATE. [Concomitant]
     Active Substance: FERROUS SULFATE
  3. ZYPREXA [Concomitant]
     Active Substance: OLANZAPINE
  4. KLOR?CON [Concomitant]
     Active Substance: POTASSIUM CHLORIDE
  5. COLACE [Concomitant]
     Active Substance: DOCUSATE SODIUM
  6. ADVIL [Concomitant]
     Active Substance: IBUPROFEN
  7. LIDOCAINE;PRILOCAINE [Concomitant]
  8. MAGNESIUM CITRATE. [Concomitant]
     Active Substance: MAGNESIUM CITRATE
  9. OPTIRAY 350 [Concomitant]
     Active Substance: IOVERSOL
  10. HYDROCORTISONE. [Concomitant]
     Active Substance: HYDROCORTISONE
  11. MOTRIN [Concomitant]
     Active Substance: IBUPROFEN
  12. ROXICODONE [Concomitant]
     Active Substance: OXYCODONE HYDROCHLORIDE
     Dosage: IMMEDIATE RELEASE
  13. COMPAZINE [Concomitant]
     Active Substance: PROCHLORPERAZINE MALEATE
  14. XELODA [Suspect]
     Active Substance: CAPECITABINE
     Indication: SKIN CANCER
  15. TYKERB [Concomitant]
     Active Substance: LAPATINIB DITOSYLATE
  16. ATIVAN [Concomitant]
     Active Substance: LORAZEPAM
  17. MS CONTIN [Concomitant]
     Active Substance: MORPHINE SULFATE
  18. XELODA [Suspect]
     Active Substance: CAPECITABINE
     Indication: METASTASES TO LYMPH NODES
  19. NARCAN [Concomitant]
     Active Substance: NALOXONE HYDROCHLORIDE
     Dosage: ACTUATION, AEROSOL

REACTIONS (6)
  - Nephrolithiasis [Unknown]
  - Pain [Unknown]
  - Anaemia [Unknown]
  - Intentional product use issue [Unknown]
  - Off label use [Unknown]
  - Stag horn calculus [Unknown]
